FAERS Safety Report 8762693 (Version 1)
Quarter: 2012Q4

REPORT INFORMATION
  Report Type: 
  Country: CN (occurrence: CN)
  Receive Date: 20120830
  Receipt Date: 20120830
  Transmission Date: 20130627
  Serious: Yes (Other)
  Sender: FDA-Public Use
  Company Number: CN-ROCHE-1110848

PATIENT
  Sex: Female
  Weight: 74 kg

DRUGS (4)
  1. MABTHERA [Suspect]
     Indication: CHEMOTHERAPY
     Route: 041
     Dates: start: 20100902, end: 20100902
  2. CYCLOPHOSPHAMIDE [Concomitant]
     Indication: CHEMOTHERAPY
     Route: 041
     Dates: start: 20100902, end: 20100902
  3. PIRARUBICIN [Concomitant]
     Indication: CHEMOTHERAPY
     Route: 041
     Dates: start: 20100902, end: 20100902
  4. VINCRISTINE SULFATE [Concomitant]
     Indication: CHEMOTHERAPY
     Route: 041
     Dates: start: 20100902, end: 20100902

REACTIONS (2)
  - Bone marrow failure [Recovering/Resolving]
  - Malignant neoplasm progression [Unknown]
